FAERS Safety Report 8795385 (Version 2)
Quarter: 2014Q2

REPORT INFORMATION
  Report Type: Report from Study
  Country: US (occurrence: US)
  Receive Date: 20120917
  Receipt Date: 20131211
  Transmission Date: 20141212
  Serious: Yes (Death)
  Sender: FDA-Public Use
  Company Number: US-ROCHE-1128052

PATIENT
  Age: 81 Year
  Sex: Male
  Weight: 74.8 kg

DRUGS (5)
  1. AVASTIN [Suspect]
     Indication: PANCREATIC CARCINOMA
     Route: 042
     Dates: start: 20111021
  2. TEMOZOLOMIDE [Concomitant]
     Indication: PANCREATIC CARCINOMA METASTATIC
     Route: 048
     Dates: start: 20111013, end: 20111018
  3. TEMOZOLOMIDE [Concomitant]
     Route: 048
     Dates: end: 20111021
  4. PROCHLORPERAZINE [Concomitant]
     Indication: NAUSEA
     Route: 048
     Dates: end: 20111021
  5. FRAGMIN [Concomitant]

REACTIONS (2)
  - Death [Fatal]
  - Oedema peripheral [Unknown]
